FAERS Safety Report 8909990 (Version 1)
Quarter: 2012Q4

REPORT INFORMATION
  Report Type: 
  Country: US (occurrence: US)
  Receive Date: 20121115
  Receipt Date: 20121115
  Transmission Date: 20130627
  Serious: Yes (Other)
  Sender: FDA-Public Use
  Company Number: US-PFIZER INC-2012281576

PATIENT
  Age: 75 Year
  Sex: Male
  Weight: 83.9 kg

DRUGS (1)
  1. VIAGRA [Suspect]
     Indication: ERECTILE DYSFUNCTION
     Dosage: 100 mg, as needed
     Route: 048
     Dates: start: 20121108

REACTIONS (3)
  - Vision blurred [Unknown]
  - Dizziness [Unknown]
  - Drug ineffective [Unknown]
